FAERS Safety Report 20518153 (Version 1)
Quarter: 2022Q1

REPORT INFORMATION
  Report Type: Report from Study
  Country: BR (occurrence: BR)
  Receive Date: 20220225
  Receipt Date: 20220225
  Transmission Date: 20220423
  Serious: Yes (Other)
  Sender: FDA-Public Use
  Company Number: BR-NOVARTISPH-NVSC2022BR042018

PATIENT
  Sex: Female

DRUGS (1)
  1. METFORMIN HYDROCHLORIDE\VILDAGLIPTIN [Suspect]
     Active Substance: METFORMIN HYDROCHLORIDE\VILDAGLIPTIN
     Indication: Product used for unknown indication
     Dosage: UNK (850/50)
     Route: 065

REACTIONS (4)
  - Diabetes mellitus [Unknown]
  - Renal disorder [Unknown]
  - Concomitant disease aggravated [Unknown]
  - Gait disturbance [Unknown]
